FAERS Safety Report 7250484-9 (Version None)
Quarter: 2011Q1

REPORT INFORMATION
  Report Type: 
  Country: None (occurrence: None)
  Receive Date: 20110128
  Receipt Date: 20110118
  Transmission Date: 20110831
  Serious: Yes (Other)
  Sender: FDA-Public Use
  Company Number: US-ACTELION-A-US2010-37654

PATIENT

DRUGS (15)
  1. BOSENTAN TABLET UNKNOWN US MG [Suspect]
     Indication: PULMONARY ARTERIAL HYPERTENSION
     Dosage: 62.5 MG, BID
     Route: 048
     Dates: start: 20100608, end: 20100704
  2. GLUCOSAMINE /CHOND [Concomitant]
  3. GARLIC [Concomitant]
  4. CALCIUM CARBONATE W/VITAMIN D [Concomitant]
  5. TADALAFIL [Concomitant]
  6. DYAZIDE [Concomitant]
  7. BOSENTAN TABLET UNKNOWN US MG [Suspect]
     Dosage: 125 MG, BID
     Route: 048
     Dates: start: 20100705
  8. FOSAMAX [Concomitant]
  9. VITAMIN B [Concomitant]
  10. MULTI-VITAMIN [Concomitant]
  11. ASPIRIN [Concomitant]
  12. VICODIN [Concomitant]
  13. REVATIO [Concomitant]
  14. VITAMIN D [Concomitant]
  15. ADVAIR [Concomitant]

REACTIONS (1)
  - PAIN IN EXTREMITY [None]
